FAERS Safety Report 13849596 (Version 3)
Quarter: 2018Q1

REPORT INFORMATION
  Report Type: Spontaneous
  Country: US (occurrence: US)
  Receive Date: 20170809
  Receipt Date: 20180329
  Transmission Date: 20180508
  Serious: No
  Sender: FDA-Public Use
  Company Number: US-PFIZER INC-2017343248

PATIENT
  Age: 68 Year
  Sex: Female
  Weight: 82 kg

DRUGS (3)
  1. XALKORI [Suspect]
     Active Substance: CRIZOTINIB
     Dosage: 250 MG, 1X/DAY (TAKES TWO 250MG CAPSULES BY MOUTH ONCE A DAY
     Route: 048
     Dates: start: 201508
  2. XALKORI [Suspect]
     Active Substance: CRIZOTINIB
     Indication: LUNG NEOPLASM MALIGNANT
     Dosage: 250 MG, 2X/DAY
     Dates: start: 201508
  3. LORAZEPAM. [Concomitant]
     Active Substance: LORAZEPAM
     Indication: PANIC ATTACK
     Dosage: UNK, AS NEEDED[TAKES HALF OF A 1MG TABLET]
     Route: 048
     Dates: start: 2013

REACTIONS (13)
  - Hypotension [Recovered/Resolved]
  - Nasopharyngitis [Recovering/Resolving]
  - Rhinorrhoea [Unknown]
  - Visual impairment [Recovering/Resolving]
  - Decreased appetite [Recovered/Resolved]
  - Vomiting [Recovered/Resolved]
  - Rales [Recovered/Resolved]
  - Body temperature decreased [Unknown]
  - Oedema peripheral [Not Recovered/Not Resolved]
  - Nausea [Recovering/Resolving]
  - Insomnia [Recovered/Resolved]
  - Cough [Recovering/Resolving]
  - Pleural effusion [Recovering/Resolving]

NARRATIVE: CASE EVENT DATE: 2015
